FAERS Safety Report 7420578-3 (Version None)
Quarter: 2011Q2

REPORT INFORMATION
  Report Type: 
  Country: None (occurrence: None)
  Receive Date: 20110418
  Receipt Date: 20110413
  Transmission Date: 20111010
  Serious: No
  Sender: FDA-Public Use
  Company Number: US-PFIZER INC-2011081705

PATIENT
  Sex: Male
  Weight: 95.692 kg

DRUGS (2)
  1. BENICAR [Concomitant]
     Indication: HYPERTENSION
     Dosage: UNK
  2. ADVIL PM [Suspect]
     Indication: MUSCULOSKELETAL PAIN
     Dosage: 1 DF, AS NEEDED
     Route: 048
     Dates: start: 20110310

REACTIONS (1)
  - DRUG LEVEL INCREASED [None]
